FAERS Safety Report 21119410 (Version 1)
Quarter: 2022Q3

REPORT INFORMATION
  Report Type: Spontaneous
  Country: DE (occurrence: DE)
  Receive Date: 20220722
  Receipt Date: 20220722
  Transmission Date: 20221026
  Serious: Yes (Congenital Anomaly, Other)
  Sender: FDA-Public Use
  Company Number: DE-EMBRYOTOX-202108462

PATIENT

DRUGS (5)
  1. SEREVENT DISKUS [Suspect]
     Active Substance: SALMETEROL XINAFOATE
     Indication: Asthma
     Dosage: UNK
     Route: 064
     Dates: start: 20201024, end: 20210807
  2. LEVOTHYROXINE SODIUM [Concomitant]
     Active Substance: LEVOTHYROXINE SODIUM
     Indication: Hypothyroidism
     Dosage: UNK, 125 [?G/D (UP TO 100 ?G/D) ]
     Route: 064
     Dates: start: 20201024, end: 20210807
  3. Comirnaty (Biontech/Pfizer) [Concomitant]
     Indication: COVID-19 immunisation
     Dosage: UNK
     Route: 064
     Dates: start: 20210615, end: 20210615
  4. CEFUROXIME [Concomitant]
     Active Substance: CEFUROXIME
     Indication: Urinary tract infection
     Dosage: UNK
     Route: 064
  5. FRAGMIN [Concomitant]
     Active Substance: DALTEPARIN SODIUM
     Indication: Prophylaxis of abortion
     Dosage: 5000 IU, QD,5000 [I.E./D ]
     Route: 064

REACTIONS (2)
  - Hypospadias [Unknown]
  - Foetal exposure during pregnancy [Unknown]

NARRATIVE: CASE EVENT DATE: 20210801
